FAERS Safety Report 9994706 (Version 1)
Quarter: 2014Q1

REPORT INFORMATION
  Report Type: Spontaneous
  Country: US (occurrence: US)
  Receive Date: 20140311
  Receipt Date: 20140311
  Transmission Date: 20141002
  Serious: No
  Sender: FDA-Public Use
  Company Number: US-BAYER-2014-036005

PATIENT
  Age: 41 Year
  Sex: Male

DRUGS (1)
  1. BETASERON [Suspect]
     Indication: MULTIPLE SCLEROSIS
     Dosage: DAILY DOSE 0.3 MG
     Route: 058
     Dates: start: 1996

REACTIONS (4)
  - Injection site reaction [None]
  - Fatigue [None]
  - Depression [None]
  - Arthralgia [None]
